FAERS Safety Report 14048048 (Version 1)
Quarter: 2017Q4

REPORT INFORMATION
  Report Type: Spontaneous
  Country: US (occurrence: US)
  Receive Date: 20171005
  Receipt Date: 20171005
  Transmission Date: 20180321
  Serious: No
  Sender: FDA-Public Use
  Company Number: None

PATIENT
  Age: 27 Year
  Sex: Male
  Weight: 105.1 kg

DRUGS (1)
  1. FLEBOGAMMA DIF [Suspect]
     Active Substance: HUMAN IMMUNOGLOBULIN G
     Indication: IMMUNE THROMBOCYTOPENIC PURPURA
     Route: 041

REACTIONS (11)
  - Chest discomfort [None]
  - Dizziness [None]
  - Discomfort [None]
  - Blood pressure decreased [None]
  - Anxiety [None]
  - Abdominal discomfort [None]
  - Erythema [None]
  - Head discomfort [None]
  - Dysgeusia [None]
  - Dyspnoea [None]
  - Flushing [None]

NARRATIVE: CASE EVENT DATE: 20171004
